FAERS Safety Report 7206425-3 (Version None)
Quarter: 2010Q4

REPORT INFORMATION
  Report Type: 
  Country: None (occurrence: None)
  Receive Date: 20101229
  Receipt Date: 20101229
  Transmission Date: 20110411
  Serious: Yes (Hospitalization)
  Sender: FDA-Public Use
  Company Number: None

PATIENT
  Age: 53 Year
  Sex: Male
  Weight: 80 kg

DRUGS (2)
  1. MORPHINE [Suspect]
     Indication: RHEUMATOID ARTHRITIS
     Dosage: 60 MG BID PO
     Route: 048
     Dates: start: 20061206
  2. FLUOXETINE [Suspect]
     Indication: DEPRESSION
     Dosage: 60 MG EVERY DAY PO
     Route: 048
     Dates: start: 20080228

REACTIONS (9)
  - ABNORMAL BEHAVIOUR [None]
  - ASTHENIA [None]
  - CONSTIPATION [None]
  - DYSARTHRIA [None]
  - DYSPNOEA [None]
  - HYPOXIA [None]
  - LETHARGY [None]
  - MENTAL STATUS CHANGES [None]
  - SOMNOLENCE [None]
